FAERS Safety Report 5120449-1 (Version None)
Quarter: 2006Q4

REPORT INFORMATION
  Report Type: 
  Country: None (occurrence: None)
  Receive Date: 20061004
  Receipt Date: 20060925
  Transmission Date: 20070319
  Serious: Yes (Hospitalization)
  Sender: FDA-Public Use
  Company Number: 2006CG01560

PATIENT
  Age: 72 Year
  Sex: Male

DRUGS (3)
  1. CASODEX [Suspect]
     Indication: PROSTATE CANCER
     Route: 048
     Dates: start: 20030101
  2. ENANTONE [Suspect]
     Indication: PROSTATE CANCER
     Route: 058
     Dates: start: 20030101
  3. DAFLON [Suspect]
     Indication: VARICOSE VEIN
     Route: 048
     Dates: end: 20060115

REACTIONS (6)
  - AORTIC VALVE INCOMPETENCE [None]
  - BRONCHOSPASM [None]
  - CARDIAC MURMUR [None]
  - DYSPNOEA [None]
  - RESPIRATORY DISTRESS [None]
  - WHEEZING [None]
